FAERS Safety Report 22101265 (Version 1)
Quarter: 2023Q1

REPORT INFORMATION
  Report Type: Spontaneous
  Country: FR (occurrence: FR)
  Receive Date: 20230316
  Receipt Date: 20230316
  Transmission Date: 20230418
  Serious: Yes (Hospitalization)
  Sender: FDA-Public Use
  Company Number: FR-AFSSAPS-PV2023000211

PATIENT
  Age: 17 Year
  Sex: Female
  Weight: 52 kg

DRUGS (1)
  1. ALPRAZOLAM [Suspect]
     Active Substance: ALPRAZOLAM
     Indication: Product used for unknown indication
     Dosage: 15 MILLIGRAM (30 TABS OF 0.5MG)
     Route: 048
     Dates: start: 20211029, end: 20211029

REACTIONS (3)
  - Somnolence [Unknown]
  - Mydriasis [Unknown]
  - Intentional overdose [Recovered/Resolved]

NARRATIVE: CASE EVENT DATE: 20211029
